FAERS Safety Report 5849458-1 (Version None)
Quarter: 2008Q3

REPORT INFORMATION
  Report Type: 
  Country: None (occurrence: None)
  Receive Date: 20080819
  Receipt Date: 20080813
  Transmission Date: 20090109
  Serious: Yes (Life-Threatening)
  Sender: FDA-Public Use
  Company Number: AU-ASTRAZENECA-2008AP06259

PATIENT

DRUGS (1)
  1. NAROPIN [Suspect]
     Indication: ANAESTHESIA
     Dosage: BRACHIAL PLEXUS NERVE BLOCK
     Dates: start: 20080101, end: 20080101

REACTIONS (2)
  - CARDIAC ARREST [None]
  - DRUG TOXICITY [None]
